FAERS Safety Report 15925148 (Version 2)
Quarter: 2019Q1

REPORT INFORMATION
  Report Type: Spontaneous
  Country: PT (occurrence: PT)
  Receive Date: 20190206
  Receipt Date: 20190302
  Transmission Date: 20190417
  Serious: Yes (Life-Threatening, Hospitalization, Other)
  Sender: FDA-Public Use
  Company Number: PT-AUROBINDO-AUR-APL-2019-005679

PATIENT

DRUGS (12)
  1. PHENYTOIN. [Suspect]
     Active Substance: PHENYTOIN
     Indication: EPILEPSY
  2. TIAPRIDE HYDROCHLORIDE [Suspect]
     Active Substance: TIAPRIDE HYDROCHLORIDE
     Indication: EPILEPSY
  3. DIAZEPAM. [Suspect]
     Active Substance: DIAZEPAM
     Indication: ALCOHOLISM
     Dosage: 10 MILLIGRAM, 3 TIMES A DAY
     Route: 065
  4. TIAPRIDE HYDROCHLORIDE [Suspect]
     Active Substance: TIAPRIDE HYDROCHLORIDE
     Indication: ABNORMAL BEHAVIOUR
     Dosage: 100 MILLIGRAM, TWO TIMES A DAY
     Route: 065
  5. TIAPRIDE HYDROCHLORIDE [Suspect]
     Active Substance: TIAPRIDE HYDROCHLORIDE
     Indication: ALCOHOLISM
     Dosage: 100 MILLIGRAM, ONCE A DAY
     Route: 065
  6. CARBAMAZAPINE [Suspect]
     Active Substance: CARBAMAZEPINE
     Indication: ABNORMAL BEHAVIOUR
     Dosage: 400 MILLIGRAM, TWO TIMES A DAY
     Route: 065
  7. CARBAMAZAPINE [Suspect]
     Active Substance: CARBAMAZEPINE
     Indication: ALCOHOLISM
     Dosage: 400 MILLIGRAM, ONCE A DAY
     Route: 065
  8. CARBAMAZAPINE [Suspect]
     Active Substance: CARBAMAZEPINE
     Indication: EPILEPSY
  9. DIAZEPAM. [Suspect]
     Active Substance: DIAZEPAM
     Indication: EPILEPSY
     Dosage: 10 MILLIGRAM, ONCE A DAY
     Route: 065
  10. PHENYTOIN. [Suspect]
     Active Substance: PHENYTOIN
     Indication: ABNORMAL BEHAVIOUR
     Dosage: 100 MILLIGRAM, TWO TIMES A DAY
     Route: 065
  11. PHENYTOIN. [Suspect]
     Active Substance: PHENYTOIN
     Indication: ALCOHOLISM
     Dosage: 100 MILLIGRAM, ONCE A DAY
     Route: 065
  12. DIAZEPAM. [Suspect]
     Active Substance: DIAZEPAM
     Indication: ABNORMAL BEHAVIOUR
     Dosage: 10 MILLIGRAM
     Route: 042

REACTIONS (14)
  - Neuroleptic malignant syndrome [Recovered/Resolved]
  - Altered state of consciousness [Recovering/Resolving]
  - Rhabdomyolysis [Recovered/Resolved]
  - Leukocytosis [Unknown]
  - Myoclonus [Recovering/Resolving]
  - Dystonia [Unknown]
  - Gait disturbance [Unknown]
  - Musculoskeletal stiffness [Recovered/Resolved]
  - Toxicity to various agents [Unknown]
  - Muscle rigidity [Unknown]
  - Enzyme level increased [Unknown]
  - Dyskinesia [Unknown]
  - Renal disorder [Recovered/Resolved]
  - Atrophy [Unknown]
